FAERS Safety Report 18019650 (Version 2)
Quarter: 2020Q3

REPORT INFORMATION
  Report Type: Report from Study
  Country: US (occurrence: US)
  Receive Date: 20200714
  Receipt Date: 20200914
  Transmission Date: 20201103
  Serious: No
  Sender: FDA-Public Use
  Company Number: NVSC2020US191888

PATIENT
  Age: 92 Year
  Sex: Male

DRUGS (1)
  1. ENTRESTO [Suspect]
     Active Substance: SACUBITRIL\VALSARTAN
     Indication: CARDIAC FAILURE
     Dosage: UNK, BID
     Route: 048
     Dates: start: 20200520, end: 20200911

REACTIONS (3)
  - Memory impairment [Unknown]
  - Sciatica [Unknown]
  - Malaise [Unknown]

NARRATIVE: CASE EVENT DATE: 20200606
